FAERS Safety Report 25274593 (Version 5)
Quarter: 2025Q4

REPORT INFORMATION
  Report Type: Report from Study
  Country: EU (occurrence: EU)
  Receive Date: 20250506
  Receipt Date: 20251029
  Transmission Date: 20260118
  Serious: No
  Sender: TAKEDA
  Company Number: EU-TAKEDA-2023TUS106040

PATIENT
  Age: 58 Year
  Sex: Male

DRUGS (27)
  1. TEDUGLUTIDE [Suspect]
     Active Substance: TEDUGLUTIDE
     Indication: Short-bowel syndrome
     Dosage: 2.65 MILLIGRAM, QD
     Dates: start: 20180306, end: 201807
  2. TEDUGLUTIDE [Suspect]
     Active Substance: TEDUGLUTIDE
     Dosage: 3 MILLIGRAM, QD
     Dates: start: 201807, end: 201811
  3. TEDUGLUTIDE [Suspect]
     Active Substance: TEDUGLUTIDE
     Dosage: 1.25 MILLIGRAM, QD
     Dates: start: 20190117, end: 20190710
  4. TEDUGLUTIDE [Suspect]
     Active Substance: TEDUGLUTIDE
     Dosage: 1.6 MILLIGRAM, QD
     Dates: start: 20190711, end: 20200204
  5. TEDUGLUTIDE [Suspect]
     Active Substance: TEDUGLUTIDE
     Dosage: 2.4 MILLIGRAM, QD
     Dates: start: 20200205, end: 202101
  6. TEDUGLUTIDE [Suspect]
     Active Substance: TEDUGLUTIDE
     Dosage: 3.2 MILLIGRAM, QD
     Dates: start: 202101, end: 202108
  7. TEDUGLUTIDE [Suspect]
     Active Substance: TEDUGLUTIDE
     Dosage: 3 MILLIGRAM, QD
     Dates: start: 202108, end: 202111
  8. TEDUGLUTIDE [Suspect]
     Active Substance: TEDUGLUTIDE
     Dosage: 3.2 MILLIGRAM, QD
     Dates: start: 202112
  9. PANCRELIPASE [Concomitant]
     Active Substance: PANCRELIPASE
     Indication: Steatorrhoea
     Dosage: 25000 INTERNATIONAL UNIT
  10. SILDENAFIL [Concomitant]
     Active Substance: SILDENAFIL
     Indication: Erectile dysfunction
     Dosage: UNK
  11. FEBUXOSTAT [Concomitant]
     Active Substance: FEBUXOSTAT
     Indication: Hyperuricaemia
     Dosage: 80 MILLIGRAM, QD
     Dates: start: 202111
  12. FEBUXOSTAT [Concomitant]
     Active Substance: FEBUXOSTAT
     Dosage: 80 MILLIGRAM, QD
  13. OMEPRAZOLE [Concomitant]
     Active Substance: OMEPRAZOLE
     Indication: Prophylaxis
     Dosage: 40 MILLIGRAM, QD
  14. METAMIZOLE [Concomitant]
     Active Substance: METAMIZOLE
     Indication: Pain
     Dosage: UNK
  15. SODIUM CHLORIDE [Concomitant]
     Active Substance: SODIUM CHLORIDE
     Dosage: UNK
  16. TRIMIPRAMINE [Concomitant]
     Active Substance: TRIMIPRAMINE
     Dosage: 50 MILLIGRAM, QD
  17. ESCITALOPRAM [Concomitant]
     Active Substance: ESCITALOPRAM OXALATE
     Dosage: 10 MILLIGRAM, QD
  18. MAGNESIUM [Concomitant]
     Active Substance: MAGNESIUM
     Dosage: UNK UNK, QD
  19. CITALOPRAM [Concomitant]
     Active Substance: CITALOPRAM
     Indication: Depression
     Dosage: UNK UNK, QD
     Dates: start: 201905
  20. Selenase [Concomitant]
     Indication: Selenium deficiency
     Dosage: 0.05 MILLIGRAM, QD
     Dates: start: 201901
  21. Frubiase calcium forte [Concomitant]
     Indication: Short-bowel syndrome
     Dosage: 350 MILLIGRAM, BID
     Dates: start: 20200122
  22. PIPERACILLIN SODIUM\TAZOBACTAM SODIUM [Concomitant]
     Active Substance: PIPERACILLIN SODIUM\TAZOBACTAM SODIUM
     Indication: Infection
     Dosage: 4 GRAM, BID
     Dates: start: 20201026
  23. VITAMIN A [Concomitant]
     Active Substance: VITAMIN A
     Indication: Hypovitaminosis
     Dosage: UNK UNK, MONTHLY
     Dates: start: 20240404
  24. VITAMIN D [Concomitant]
     Active Substance: VITAMIN D NOS
     Indication: Hypovitaminosis
     Dosage: UNK UNK, MONTHLY
     Dates: start: 20240404
  25. VITAMIN K [Concomitant]
     Active Substance: PHYTONADIONE
     Indication: Hypovitaminosis
     Dosage: UNK UNK, MONTHLY
     Dates: start: 20240404
  26. POTASSIUM CITRATE [Concomitant]
     Active Substance: POTASSIUM CITRATE
     Dosage: UNK UNK, QD
     Dates: start: 202408
  27. Natrium hydrocarbonate [Concomitant]
     Indication: Acidosis
     Dosage: 250 MILLILITER, QD
     Dates: start: 20250522

REACTIONS (2)
  - Blood creatinine increased [Recovered/Resolved]
  - Monoclonal gammopathy [Unknown]

NARRATIVE: CASE EVENT DATE: 20231001
